FAERS Safety Report 8302483-3 (Version None)
Quarter: 2012Q1

REPORT INFORMATION
  Report Type: 
  Country: None (occurrence: None)
  Receive Date: 20120326
  Receipt Date: 20111223
  Transmission Date: 20120608
  Serious: Yes (Other)
  Sender: FDA-Public Use
  Company Number: PHEH2011US012437

PATIENT
  Age: 78 Year
  Sex: Male
  Weight: 130 kg

DRUGS (4)
  1. SYNTHROID [Concomitant]
  2. NITROGLYCERIN [Concomitant]
  3. DIGOXIN [Concomitant]
  4. TASIGNA [Suspect]
     Indication: CHRONIC MYELOID LEUKAEMIA
     Dosage: 150 MG, BID, ORAL
     Route: 048
     Dates: start: 20110328

REACTIONS (2)
  - FATIGUE [None]
  - DECREASED APPETITE [None]
